FAERS Safety Report 23161677 (Version 1)
Quarter: 2023Q4

REPORT INFORMATION
  Report Type: Report from Study
  Country: US (occurrence: US)
  Receive Date: 20231108
  Receipt Date: 20231108
  Transmission Date: 20240109
  Serious: Yes (Hospitalization, Other)
  Sender: FDA-Public Use
  Company Number: US-ABBVIE-5486500

PATIENT
  Sex: Female

DRUGS (1)
  1. IMBRUVICA [Suspect]
     Active Substance: IBRUTINIB
     Indication: Product used for unknown indication
     Route: 048

REACTIONS (7)
  - Cellulitis [Unknown]
  - Blood glucose increased [Unknown]
  - Renal failure [Unknown]
  - Weight decreased [Unknown]
  - Decreased appetite [Unknown]
  - Localised infection [Unknown]
  - Anosmia [Unknown]

NARRATIVE: CASE EVENT DATE: 20230101
